FAERS Safety Report 15087767 (Version 9)
Quarter: 2020Q1

REPORT INFORMATION
  Report Type: Report from Study
  Country: GB (occurrence: GB)
  Receive Date: 20180629
  Receipt Date: 20200305
  Transmission Date: 20200409
  Serious: Yes (Life-Threatening, Hospitalization)
  Sender: FDA-Public Use
  Company Number: GB-AMGEN-GBRNI2018086461

PATIENT
  Age: 30 Year
  Sex: Female
  Weight: 46.6 kg

DRUGS (12)
  1. TRIMETHOPRIM. [Concomitant]
     Active Substance: TRIMETHOPRIM
     Dosage: 80 MILLIGRAM
     Dates: start: 20180220, end: 20180316
  2. MUPIROCIN. [Concomitant]
     Active Substance: MUPIROCIN
     Dosage: 1 UNK
     Dates: start: 20180220, end: 20180301
  3. AMOXICILLIN. [Concomitant]
     Active Substance: AMOXICILLIN
     Indication: PYREXIA
     Dosage: 500 MILLIGRAM
     Dates: start: 20180220, end: 20180223
  4. ALLOPURINOL. [Concomitant]
     Active Substance: ALLOPURINOL
     Dosage: 300 MILLIGRAM
     Dates: start: 20180216, end: 20180514
  5. BLINATUMOMAB [Suspect]
     Active Substance: BLINATUMOMAB
     Dosage: UNK
     Route: 042
     Dates: start: 20180301
  6. SULFAMETHOXAZOLE [Concomitant]
     Active Substance: SULFAMETHOXAZOLE
     Dosage: 400 MILLIGRAM
     Dates: start: 20180220, end: 20180316
  7. PARACETAMOL [Concomitant]
     Active Substance: ACETAMINOPHEN
     Dosage: 1 GRAM
     Dates: start: 20180215, end: 20180420
  8. DEXAMETHASONE. [Concomitant]
     Active Substance: DEXAMETHASONE
     Dosage: 3- 20 MILLIGRAM
     Dates: start: 20180220, end: 20180327
  9. CHLORHEXIDINE GLUCONATE. [Concomitant]
     Active Substance: CHLORHEXIDINE GLUCONATE
     Dosage: 1 UNK
     Dates: start: 20180220, end: 20180310
  10. BLINATUMOMAB [Suspect]
     Active Substance: BLINATUMOMAB
     Indication: ACUTE LYMPHOCYTIC LEUKAEMIA
     Dosage: 21 MICROGRAM, QD
     Route: 042
     Dates: start: 20180222
  11. FOLIC ACID. [Concomitant]
     Active Substance: FOLIC ACID
     Dosage: 5 MILLIGRAM
     Dates: start: 20180220, end: 20180316
  12. ACICLOVIR [Concomitant]
     Active Substance: ACYCLOVIR
     Dosage: 400 MILLIGRAM
     Dates: start: 20180219, end: 20180514

REACTIONS (7)
  - Neutropenic sepsis [Recovered/Resolved]
  - Petechiae [Recovered/Resolved]
  - Pyrexia [Recovered/Resolved]
  - Hepatotoxicity [Recovered/Resolved]
  - Neutropenia [Recovered/Resolved]
  - Hypokalaemia [Recovered/Resolved]
  - Hot flush [Recovered/Resolved]

NARRATIVE: CASE EVENT DATE: 20180223
